FAERS Safety Report 8047625-2 (Version None)
Quarter: 2012Q1

REPORT INFORMATION
  Report Type: 
  Country: None (occurrence: None)
  Receive Date: 20120116
  Receipt Date: 20111228
  Transmission Date: 20120608
  Serious: Yes (Other)
  Sender: FDA-Public Use
  Company Number: JP-GLAXOSMITHKLINE-B0772288A

PATIENT
  Sex: Female

DRUGS (6)
  1. LAMICTAL [Suspect]
     Indication: BIPOLAR DISORDER
     Dosage: 25MG PER DAY
     Route: 048
     Dates: start: 20111026, end: 20111223
  2. METHOTREXATE [Suspect]
     Indication: RHEUMATOID ARTHRITIS
     Dosage: 16MG PER DAY
     Route: 048
     Dates: start: 20100421, end: 20111223
  3. AZULFIDINE [Concomitant]
     Indication: RHEUMATOID ARTHRITIS
     Dosage: 1000MG PER DAY
     Route: 048
     Dates: start: 20110310, end: 20111223
  4. CELECOXIB [Concomitant]
     Indication: RHEUMATOID ARTHRITIS
     Dosage: 200MG PER DAY
     Route: 048
     Dates: start: 20100205, end: 20111223
  5. ANAFRANIL [Concomitant]
     Indication: BIPOLAR DISORDER
     Dosage: 100MG PER DAY
     Route: 048
     Dates: start: 20050630
  6. DEPAKENE [Suspect]
     Indication: BIPOLAR DISORDER
     Dosage: 1200MG PER DAY
     Route: 048
     Dates: start: 20060512, end: 20111223

REACTIONS (10)
  - SKIN EROSION [None]
  - EOSINOPHIL PERCENTAGE INCREASED [None]
  - HYPOPHAGIA [None]
  - BLOOD LACTATE DEHYDROGENASE INCREASED [None]
  - ASPARTATE AMINOTRANSFERASE INCREASED [None]
  - ERYTHEMA [None]
  - PLATELET COUNT DECREASED [None]
  - PHARYNGEAL EROSION [None]
  - ALANINE AMINOTRANSFERASE INCREASED [None]
  - HEPATIC FUNCTION ABNORMAL [None]
